FAERS Safety Report 9596555 (Version 3)
Quarter: 2013Q4

REPORT INFORMATION
  Report Type: Spontaneous
  Country: TN (occurrence: TN)
  Receive Date: 20131004
  Receipt Date: 20131010
  Transmission Date: 20140711
  Serious: Yes (Death)
  Sender: FDA-Public Use
  Company Number: TN-ROCHE-1280421

PATIENT
  Sex: Female

DRUGS (2)
  1. AVASTIN [Suspect]
     Indication: BREAST CANCER METASTATIC
     Route: 042
     Dates: start: 201202
  2. TAXOL [Concomitant]
     Route: 065
     Dates: start: 201202

REACTIONS (4)
  - Cholestasis [Fatal]
  - Hyperbilirubinaemia [Fatal]
  - Hepatic encephalopathy [Fatal]
  - Portal hypertension [Fatal]
